FAERS Safety Report 7217684-5 (Version None)
Quarter: 2011Q1

REPORT INFORMATION
  Report Type: 
  Country: None (occurrence: None)
  Receive Date: 20110110
  Receipt Date: 20101217
  Transmission Date: 20110831
  Serious: Yes (Other)
  Sender: FDA-Public Use
  Company Number: IT-ROCHE-751950

PATIENT
  Age: 69 Year
  Sex: Female

DRUGS (2)
  1. RIBAVARIN [Suspect]
     Dosage: WEIGHT BASED
     Route: 048
  2. PEGINTERFERON ALFA-2A [Suspect]
     Route: 058

REACTIONS (1)
  - CARDIAC FAILURE [None]
